FAERS Safety Report 10140821 (Version 3)
Quarter: 2014Q2

REPORT INFORMATION
  Report Type: Report from Study
  Country: JP (occurrence: JP)
  Receive Date: 20140429
  Receipt Date: 20140529
  Transmission Date: 20141212
  Serious: Yes (Other)
  Sender: FDA-Public Use
  Company Number: JP-TAKEDA-2014TJP002452

PATIENT
  Age: 69 Year
  Sex: Male
  Weight: 70.3 kg

DRUGS (12)
  1. ALOGLIPTIN [Suspect]
     Indication: TYPE 2 DIABETES MELLITUS
     Dosage: 25 MG, QD
     Route: 048
     Dates: start: 20121127
  2. ACTOS TABLETS 30 [Suspect]
     Indication: TYPE 2 DIABETES MELLITUS
     Dosage: 15 MG, 1 DAYS
     Route: 048
  3. DAONIL [Suspect]
     Indication: TYPE 2 DIABETES MELLITUS
     Dosage: 10 MG, 1 DAYS
     Route: 048
     Dates: end: 20130520
  4. DAONIL [Suspect]
     Dosage: 7.5 MG,1 DAYS
     Route: 048
     Dates: start: 20130521, end: 20130716
  5. DAONIL [Suspect]
     Dosage: 5 MG, 1 DAYS
     Route: 048
     Dates: start: 20130717, end: 20130806
  6. DAONIL [Suspect]
     Dosage: 2.5 MG,1 DAYS
     Route: 048
     Dates: start: 20130807, end: 20130813
  7. AMARYL [Concomitant]
     Indication: TYPE 2 DIABETES MELLITUS
     Dosage: 1 MG, 1 DAY
     Route: 048
     Dates: start: 20131008
  8. CRESTOR [Concomitant]
     Dosage: 5 MG, 1 DAYS
     Route: 048
  9. NU-LOTAN [Concomitant]
     Dosage: 50 MG, 1 DAYS
     Route: 048
  10. CALBLOCK [Concomitant]
     Dosage: 16 MG, 1 DAYS
     Route: 048
  11. LENDORMIN [Concomitant]
     Dosage: 0.25 MG, 1 DAYS
     Route: 048
     Dates: end: 20130326
  12. MYSLEE [Concomitant]
     Dosage: 10 MG,1 DAYS
     Route: 048
     Dates: start: 20130618

REACTIONS (4)
  - Rib fracture [Recovered/Resolved]
  - Hand fracture [Recovered/Resolved]
  - Fall [Recovered/Resolved]
  - Hypoglycaemia [Recovered/Resolved]
